FAERS Safety Report 21578182 (Version 2)
Quarter: 2022Q4

REPORT INFORMATION
  Report Type: Report from Study
  Country: US (occurrence: US)
  Receive Date: 20221110
  Receipt Date: 20221216
  Transmission Date: 20230112
  Serious: No
  Sender: FDA-Public Use
  Company Number: US-ABBVIE-4135323

PATIENT
  Sex: Female
  Weight: 79 kg

DRUGS (2)
  1. HUMIRA [Suspect]
     Active Substance: ADALIMUMAB
     Indication: Colitis ulcerative
     Dosage: INCREASED DOSE?CITRATE FREE?ONSET DATE FOR EVENTS INCREASED DOSE DIFFERENT THAN PI AND HUMIRA WAS...
     Route: 058
     Dates: start: 202209
  2. HUMIRA [Suspect]
     Active Substance: ADALIMUMAB
     Dosage: CITRATE FREE?END DATE: 2022
     Route: 058
     Dates: start: 202207

REACTIONS (3)
  - Frequent bowel movements [Not Recovered/Not Resolved]
  - Unevaluable event [Recovered/Resolved]
  - Drug ineffective [Not Recovered/Not Resolved]
